FAERS Safety Report 9704400 (Version 3)
Quarter: 2014Q1

REPORT INFORMATION
  Report Type: Spontaneous
  Country: US (occurrence: US)
  Receive Date: 20131122
  Receipt Date: 20140214
  Transmission Date: 20141002
  Serious: Yes (Other)
  Sender: FDA-Public Use
  Company Number: US-MYLANLABS-2013S1021319

PATIENT
  Age: 66 Year
  Sex: Female
  Weight: 65.77 kg

DRUGS (8)
  1. CLONAZEPAM TABLETS, USP [Suspect]
     Indication: MYOCLONIC EPILEPSY
     Route: 048
     Dates: start: 2010, end: 20130906
  2. PREMARIN [Concomitant]
     Route: 048
  3. PREVACID [Concomitant]
     Route: 048
  4. MELOXICAM [Concomitant]
  5. OXYCODONE [Concomitant]
  6. PROBIOTICS [Concomitant]
  7. SENNA-S [Concomitant]
  8. VITAMIN D [Concomitant]

REACTIONS (4)
  - Drug ineffective [Recovered/Resolved]
  - Myoclonic epilepsy [Recovered/Resolved]
  - Pain [Recovered/Resolved]
  - Nerve root compression [Recovered/Resolved]
